FAERS Safety Report 4537053-6 (Version None)
Quarter: 2004Q4

REPORT INFORMATION
  Report Type: 
  Country: None (occurrence: None)
  Receive Date: 20041223
  Receipt Date: 20041019
  Transmission Date: 20050328
  Serious: Yes (Other)
  Sender: FDA-Public Use
  Company Number: US-BRISTOL-MYERS SQUIBB COMPANY-12736203

PATIENT
  Age: 44 Year
  Sex: Male
  Weight: 68 kg

DRUGS (7)
  1. REYATAZ [Suspect]
     Indication: HIV INFECTION
     Route: 048
     Dates: start: 20040101, end: 20041001
  2. RITONAVIR [Concomitant]
     Dates: end: 20041001
  3. TENOFOVIR [Concomitant]
     Dates: end: 20041001
  4. EPIVIR [Concomitant]
     Dates: end: 20041001
  5. DAPSONE [Concomitant]
  6. FLUCONAZOLE [Concomitant]
  7. NEUPOGEN [Concomitant]

REACTIONS (1)
  - BLOOD GLUCOSE INCREASED [None]
